FAERS Safety Report 9690895 (Version 5)
Quarter: 2015Q1

REPORT INFORMATION
  Report Type: Report from Study
  Country: US (occurrence: US)
  Receive Date: 20131115
  Receipt Date: 20150305
  Transmission Date: 20150721
  Serious: No
  Sender: FDA-Public Use
  Company Number: US-SA-2013SA114924

PATIENT
  Age: 60 Year
  Sex: Male
  Weight: 81.64 kg

DRUGS (2)
  1. AUBAGIO [Suspect]
     Active Substance: TERIFLUNOMIDE
     Indication: MULTIPLE SCLEROSIS
     Route: 048
     Dates: start: 201210
  2. AMPYRA [Concomitant]
     Active Substance: DALFAMPRIDINE
     Dates: start: 201408

REACTIONS (3)
  - Product packaging issue [Unknown]
  - Pain in extremity [Recovering/Resolving]
  - Sensory loss [Not Recovered/Not Resolved]
